FAERS Safety Report 24660352 (Version 1)
Quarter: 2024Q4

REPORT INFORMATION
  Report Type: Spontaneous
  Country: GR (occurrence: GR)
  Receive Date: 20241125
  Receipt Date: 20241125
  Transmission Date: 20250115
  Serious: Yes (Other)
  Sender: ELI LILLY AND COMPANY
  Company Number: None

PATIENT
  Age: 59 Year
  Sex: Female

DRUGS (1)
  1. TALTZ [Suspect]
     Active Substance: IXEKIZUMAB
     Indication: Psoriasis
     Dosage: 1 DOSAGE FORM, EVERY TWO WEEKS
     Route: 058
     Dates: start: 20241028, end: 20241108

REACTIONS (1)
  - Skin oedema [Recovering/Resolving]

NARRATIVE: CASE EVENT DATE: 20241028
